FAERS Safety Report 10514987 (Version 2)
Quarter: 2014Q4

REPORT INFORMATION
  Report Type: Spontaneous
  Country: US (occurrence: US)
  Receive Date: 20141013
  Receipt Date: 20141107
  Transmission Date: 20150528
  Serious: Yes (Hospitalization, Other)
  Sender: FDA-Public Use
  Company Number: PHEH2014US019993

PATIENT
  Age: 20 Year
  Sex: Female
  Weight: 54 kg

DRUGS (8)
  1. NORVASC [Concomitant]
     Active Substance: AMLODIPINE BESYLATE
     Indication: PRODUCT USED FOR UNKNOWN INDICATION
     Route: 065
  2. RECLAST [Suspect]
     Active Substance: ZOLEDRONIC ACID
     Indication: OSTEOPOROSIS
     Dosage: 5 MG, EVERY 12 MONTHS
     Route: 042
     Dates: start: 20140905
  3. HYDROXYCHLOROQUINE [Concomitant]
     Active Substance: HYDROXYCHLOROQUINE
     Indication: SYSTEMIC LUPUS ERYTHEMATOSUS
     Dosage: 200 MG, DAILY
     Route: 048
     Dates: start: 201304
  4. DEPO-PROVERA [Concomitant]
     Active Substance: MEDROXYPROGESTERONE ACETATE
     Indication: PRODUCT USED FOR UNKNOWN INDICATION
     Route: 065
  5. PLAQUENIL [Concomitant]
     Active Substance: HYDROXYCHLOROQUINE SULFATE
     Indication: SYSTEMIC LUPUS ERYTHEMATOSUS
     Dosage: 5 MG, QD
     Route: 048
     Dates: start: 201312
  6. MULTI VITAMIN [Concomitant]
     Active Substance: VITAMINS
     Indication: PRODUCT USED FOR UNKNOWN INDICATION
     Dosage: 1 DF, DAILY
     Route: 048
  7. RECLAST [Suspect]
     Active Substance: ZOLEDRONIC ACID
     Indication: OSTEOPOROSIS PROPHYLAXIS
  8. BENLYSTA [Concomitant]
     Active Substance: BELIMUMAB
     Indication: SYSTEMIC LUPUS ERYTHEMATOSUS
     Dosage: 10 MG/KG, Q4 WEEKS
     Route: 042
     Dates: start: 20140613

REACTIONS (32)
  - Aspartate aminotransferase increased [Not Recovered/Not Resolved]
  - Presyncope [Recovering/Resolving]
  - Fall [Unknown]
  - Diplopia [Unknown]
  - Blood alkaline phosphatase decreased [Recovered/Resolved]
  - Haematocrit decreased [Recovered/Resolved]
  - Headache [Unknown]
  - Syncope [Unknown]
  - Blindness [Unknown]
  - Deafness [Unknown]
  - Neutrophil percentage increased [Recovered/Resolved]
  - Prothrombin time prolonged [Unknown]
  - Tri-iodothyronine decreased [Unknown]
  - Alanine aminotransferase increased [Recovered/Resolved]
  - Aspartate aminotransferase decreased [Unknown]
  - Blood chloride increased [Not Recovered/Not Resolved]
  - Blood urea decreased [Recovered/Resolved]
  - Lymphocyte count decreased [Recovered/Resolved]
  - Pyrexia [Unknown]
  - Hypophosphataemia [Recovered/Resolved]
  - Hypocalcaemia [Recovered/Resolved]
  - Blood thyroid stimulating hormone decreased [Unknown]
  - Blood glucose increased [Recovered/Resolved]
  - Carbon dioxide decreased [Recovered/Resolved]
  - Haemoglobin decreased [Not Recovered/Not Resolved]
  - Dizziness [Unknown]
  - Liver function test abnormal [Recovered/Resolved]
  - Drug hypersensitivity [Unknown]
  - Vision blurred [Unknown]
  - Eosinophil count decreased [Unknown]
  - Nausea [Unknown]
  - Abdominal pain [Unknown]

NARRATIVE: CASE EVENT DATE: 20140905
